FAERS Safety Report 20845510 (Version 4)
Quarter: 2022Q3

REPORT INFORMATION
  Report Type: Report from Study
  Country: US (occurrence: US)
  Receive Date: 20220518
  Receipt Date: 20220913
  Transmission Date: 20221026
  Serious: Yes (Death, Other)
  Sender: FDA-Public Use
  Company Number: US-SUNOVION-2022SUN001428

PATIENT
  Age: 82 Year
  Sex: Male

DRUGS (3)
  1. KYNMOBI [Suspect]
     Active Substance: APOMORPHINE HYDROCHLORIDE
     Indication: Parkinson^s disease
     Dosage: 10 MG
     Route: 060
     Dates: start: 20220502, end: 20220502
  2. KYNMOBI [Suspect]
     Active Substance: APOMORPHINE HYDROCHLORIDE
     Dosage: 20 MG
     Route: 060
     Dates: start: 20220517, end: 20220517
  3. KYNMOBI [Suspect]
     Active Substance: APOMORPHINE HYDROCHLORIDE
     Dosage: 20 MG, EVERY 2 HOURS UP TO 5 TIMES PER DAY AS NEEDED
     Route: 060

REACTIONS (5)
  - Death [Fatal]
  - Asthenia [Unknown]
  - Malaise [Unknown]
  - Blood pressure fluctuation [Unknown]
  - Nausea [Unknown]

NARRATIVE: CASE EVENT DATE: 20220502
